FAERS Safety Report 7325352 (Version 4)
Quarter: 2013Q1

REPORT INFORMATION
  Report Type: Report from Study
  Country: None (occurrence: KR)
  Receive Date: 20100319
  Receipt Date: 20130225
  Transmission Date: 20140127
  Serious: Yes (Hospitalization)
  Sender: FDA-Public Use
  Company Number: KR-BAXTER-2010BH006430

PATIENT
  Age: 8 Year
  Sex: Male
  Weight: 44 kg

DRUGS (12)
  1. ADVATE [Suspect]
     Indication: HAEMOPHILIC ARTHROPATHY
     Route: 042
     Dates: start: 20100203, end: 20100203
  2. ADVATE [Suspect]
     Indication: PROPHYLAXIS
     Route: 042
     Dates: start: 20100204, end: 20100204
  3. ADVATE [Suspect]
     Route: 042
     Dates: start: 20100205, end: 20100205
  4. ADVATE [Suspect]
     Route: 042
     Dates: start: 20100208, end: 20100208
  5. ADVATE [Suspect]
     Route: 042
     Dates: start: 20100211, end: 20100211
  6. ADVATE [Suspect]
     Route: 042
     Dates: start: 20100212, end: 20100212
  7. ADVATE [Suspect]
     Route: 042
     Dates: start: 20100213, end: 20100213
  8. ADVATE [Suspect]
     Route: 042
     Dates: start: 20100216, end: 20100216
  9. ADVATE [Suspect]
     Route: 042
     Dates: start: 20100302, end: 20100302
  10. ADVATE [Suspect]
     Dates: start: 20100305
  11. HUMAN FACTOR VIII [Concomitant]
     Indication: PRODUCT USED FOR UNKNOWN INDICATION
     Dates: end: 20100126
  12. HUMAN FACTOR VIII [Concomitant]
     Dates: end: 20100303

REACTIONS (4)
  - Joint range of motion decreased [Recovered/Resolved]
  - Joint swelling [Recovered/Resolved]
  - Drug ineffective [Recovered/Resolved]
  - Arthralgia [Recovered/Resolved]
